FAERS Safety Report 8595704-3 (Version None)
Quarter: 2012Q3

REPORT INFORMATION
  Report Type: 
  Country: None (occurrence: None)
  Receive Date: 20120815
  Receipt Date: 20120731
  Transmission Date: 20120928
  Serious: Yes (Other)
  Sender: FDA-Public Use
  Company Number: JP-ROCHE-1086123

PATIENT
  Age: 73 Year
  Sex: Male
  Weight: 62 kg

DRUGS (9)
  1. HERCEPTIN [Suspect]
     Indication: METASTATIC GASTRIC CANCER
     Dosage: 8MG/KG
     Route: 041
     Dates: start: 20120704, end: 20120704
  2. LANSOPRAZOLE [Concomitant]
     Dosage: DOSAGE IS UNCERTAIN.
     Route: 048
  3. FERROUS CITRATE [Concomitant]
     Dosage: DOSAGE IS UNCERTAIN.
     Route: 048
  4. XELODA [Suspect]
     Indication: METASTATIC GASTRIC CANCER
     Route: 048
     Dates: start: 20120704, end: 20120704
  5. MAGLAX [Concomitant]
     Dosage: DOSAGE IS UNCERTAIN.
     Route: 048
  6. ALLOID G [Concomitant]
     Dosage: DOSAGE IS UNCERTAIN.
     Route: 048
  7. ACETAMINOPHEN [Concomitant]
     Dosage: DOSAGE IS UNCERTAIN.
     Route: 065
  8. PROMAC [Concomitant]
     Dosage: DOSAGE IS UNCERTAIN.
     Route: 048
  9. HOCHUEKKITO [Concomitant]
     Dosage: DOSAGE IS UNCERTAIN.
     Route: 048

REACTIONS (5)
  - INFUSION RELATED REACTION [None]
  - PRURITUS [None]
  - RESPIRATORY FAILURE [None]
  - ANAEMIA [None]
  - DIARRHOEA [None]
